FAERS Safety Report 18043796 (Version 1)
Quarter: 2020Q3

REPORT INFORMATION
  Report Type: Spontaneous
  Country: US (occurrence: US)
  Receive Date: 20200720
  Receipt Date: 20200720
  Transmission Date: 20201103
  Serious: Yes (Hospitalization)
  Sender: FDA-Public Use
  Company Number: None

PATIENT
  Age: 72 Year
  Sex: Male
  Weight: 75 kg

DRUGS (1)
  1. RITUXIMAB (RITUXIMAB 10MG/ML INJ,VIL, 50ML) [Suspect]
     Active Substance: RITUXIMAB
     Indication: HAIRY CELL LEUKAEMIA
     Route: 042
     Dates: start: 20200601, end: 20200601

REACTIONS (7)
  - Chills [None]
  - Fatigue [None]
  - Dyspnoea [None]
  - Blood pressure decreased [None]
  - Dizziness [None]
  - Chest discomfort [None]
  - Atrioventricular block [None]

NARRATIVE: CASE EVENT DATE: 20200601
